FAERS Safety Report 7097521-2 (Version None)
Quarter: 2010Q4

REPORT INFORMATION
  Report Type: 
  Country: None (occurrence: None)
  Receive Date: 20101111
  Receipt Date: 20101108
  Transmission Date: 20110411
  Serious: Yes (Disabling, Other)
  Sender: FDA-Public Use
  Company Number: PHHY2010CA55734

PATIENT
  Sex: Female

DRUGS (3)
  1. ACLASTA [Suspect]
     Indication: OSTEOPOROSIS
     Dosage: UNK
     Dates: start: 20080101
  2. ACLASTA [Suspect]
     Dosage: UNK
     Dates: start: 20090101
  3. ACLASTA [Suspect]
     Dosage: UNK
     Dates: start: 20070101

REACTIONS (3)
  - BONE LESION [None]
  - OSTEOMYELITIS [None]
  - SURGERY [None]
